FAERS Safety Report 4906643-0 (Version None)
Quarter: 2006Q1

REPORT INFORMATION
  Report Type: 
  Country: None (occurrence: None)
  Receive Date: 20060209
  Receipt Date: 20060207
  Transmission Date: 20060701
  Serious: Yes (Congenital Anomaly)
  Sender: FDA-Public Use
  Company Number: GR-GLAXOSMITHKLINE-B0409768A

PATIENT
  Sex: Male

DRUGS (1)
  1. SEROXAT [Suspect]

REACTIONS (6)
  - CONGENITAL GASTRIC ANOMALY [None]
  - CONGENITAL OESOPHAGEAL ANOMALY [None]
  - DRUG EXPOSURE DURING PREGNANCY [None]
  - DYSPLASIA [None]
  - GASTRIC DISORDER [None]
  - TOE DEFORMITY [None]
